FAERS Safety Report 6440606-1 (Version None)
Quarter: 2009Q4

REPORT INFORMATION
  Report Type: 
  Country: None (occurrence: None)
  Receive Date: 20091113
  Receipt Date: 20091106
  Transmission Date: 20100525
  Serious: Yes (Hospitalization)
  Sender: FDA-Public Use
  Company Number: JP-GENENTECH-290447

PATIENT
  Sex: Male

DRUGS (11)
  1. RITUXAN [Suspect]
     Indication: B-CELL LYMPHOMA
     Dosage: UNK
     Route: 042
     Dates: start: 20090824
  2. ONCOVIN [Suspect]
     Indication: B-CELL LYMPHOMA
     Dosage: 2 MG, UNK
     Route: 042
     Dates: start: 20090819
  3. ENDOXAN [Concomitant]
     Indication: B-CELL LYMPHOMA
     Dosage: 1280 MG, UNK
     Route: 042
     Dates: start: 20090819
  4. PREDONINE [Concomitant]
     Indication: B-CELL LYMPHOMA
     Dosage: 100 MG, QD
     Route: 042
     Dates: start: 20090819, end: 20090823
  5. BASEN [Concomitant]
     Indication: DIABETES MELLITUS
     Dosage: 0.9 MG, QD
     Route: 048
     Dates: start: 20090722, end: 20090822
  6. ACTOS [Concomitant]
     Indication: DIABETES MELLITUS
     Dosage: 15 MG, QD
     Route: 048
     Dates: start: 20090722, end: 20090822
  7. ALDACTONE [Concomitant]
     Indication: OEDEMA PERIPHERAL
     Dosage: 25 MG, QD
     Route: 048
     Dates: start: 20090722
  8. LASIX [Concomitant]
     Indication: OEDEMA PERIPHERAL
     Dosage: 40 MG, QD
     Route: 048
     Dates: start: 20090722
  9. LANSOPRAZOLE [Concomitant]
     Indication: PROPHYLAXIS AGAINST GASTROINTESTINAL ULCER
     Dosage: 30 MG, QD
     Route: 048
     Dates: start: 20090819
  10. BAKTAR [Concomitant]
     Indication: PROPHYLAXIS
     Dosage: 2 TABLET, 2/WEEK
     Dates: start: 20090819
  11. FLUCONAZOLE [Concomitant]
     Indication: ANTIFUNGAL PROPHYLAXIS
     Dosage: 2 UNK, QD
     Dates: start: 20090819

REACTIONS (2)
  - HEPATIC ENCEPHALOPATHY [None]
  - WHITE BLOOD CELL COUNT DECREASED [None]
